FAERS Safety Report 7016056-6 (Version None)
Quarter: 2010Q3

REPORT INFORMATION
  Report Type: 
  Country: None (occurrence: None)
  Receive Date: 20100927
  Receipt Date: 20100923
  Transmission Date: 20110219
  Serious: No
  Sender: FDA-Public Use
  Company Number: US-ROXANE LABORATORIES, INC.-2010-RO-01274RO

PATIENT
  Sex: Female

DRUGS (3)
  1. PREDNISONE [Suspect]
     Indication: PAIN
     Dosage: 10 MG
     Route: 048
     Dates: start: 20100401, end: 20100601
  2. RECLAST [Concomitant]
     Indication: OSTEOPOROSIS
  3. BENICAR [Concomitant]
     Indication: HYPERTENSION
     Dosage: 40 MG

REACTIONS (3)
  - ABDOMINAL PAIN UPPER [None]
  - HEADACHE [None]
  - SLEEP DISORDER [None]
